FAERS Safety Report 25928054 (Version 2)
Quarter: 2025Q4

REPORT INFORMATION
  Report Type: Spontaneous
  Country: US (occurrence: US)
  Receive Date: 20251016
  Receipt Date: 20251205
  Transmission Date: 20260117
  Serious: Yes (Other)
  Sender: CHURCH & DWIGHT
  Company Number: US-CHURCH AND DWIGHT CO., INC-2025-CDW-01612

PATIENT
  Age: 41 Year
  Sex: Female

DRUGS (1)
  1. COSMETICS [Suspect]
     Active Substance: COSMETICS
     Indication: Product used for unknown indication
     Dosage: UNK UNK, SINGLE
     Route: 061
     Dates: start: 20250816, end: 20250816

REACTIONS (7)
  - Application site infection [Unknown]
  - Application site pustules [Unknown]
  - Application site burn [Unknown]
  - Impaired work ability [Unknown]
  - Hypertension [Unknown]
  - Application site pain [Not Recovered/Not Resolved]
  - Application site exfoliation [Unknown]

NARRATIVE: CASE EVENT DATE: 20250816
